APPROVED DRUG PRODUCT: NEBCIN
Active Ingredient: TOBRAMYCIN SULFATE
Strength: EQ 1.2GM BASE/VIAL **Federal Register determination that product was not discontinued or withdrawn for safety or effectiveness reasons**
Dosage Form/Route: INJECTABLE;INJECTION
Application: N050519 | Product #001
Applicant: ELI LILLY AND CO
Approved: Approved Prior to Jan 1, 1982 | RLD: Yes | RS: No | Type: DISCN